FAERS Safety Report 8152087 (Version 4)
Quarter: 2013Q1

REPORT INFORMATION
  Report Type: Spontaneous
  Country: US (occurrence: US)
  Receive Date: 20110922
  Receipt Date: 20130213
  Transmission Date: 20140127
  Serious: Yes (Other)
  Sender: FDA-Public Use
  Company Number: US-ASTRAZENECA-2011SE12568

PATIENT
  Sex: Female

DRUGS (7)
  1. SEROQUEL [Suspect]
     Route: 048
     Dates: start: 20050928
  2. SEROQUEL [Suspect]
     Route: 048
     Dates: start: 20071031
  3. ABILIFY [Concomitant]
     Dates: start: 20070731
  4. DEPAKOTE [Concomitant]
     Dates: start: 20080125
  5. GEODON [Concomitant]
     Dosage: 80 MG EACH PM OR 5 PM AFTER DINNER
     Dates: start: 20050928
  6. ESKALITH CR [Concomitant]
     Dates: start: 20050928
  7. BENICAR HCT [Concomitant]
     Dosage: 20/12.5 MG
     Dates: start: 20070627

REACTIONS (3)
  - Pancreatitis [Unknown]
  - Diabetic coma [Unknown]
  - Type 2 diabetes mellitus [Unknown]
